FAERS Safety Report 10172049 (Version 2)
Quarter: 2014Q2

REPORT INFORMATION
  Report Type: Spontaneous
  Country: PL (occurrence: PL)
  Receive Date: 20140515
  Receipt Date: 20140515
  Transmission Date: 20141212
  Serious: Yes (Other)
  Sender: FDA-Public Use
  Company Number: PHHY2012PL092500

PATIENT
  Age: 32 Year
  Sex: Female
  Weight: 55 kg

DRUGS (9)
  1. OMALIZUMAB [Suspect]
     Indication: ASTHMA
     Dosage: 600 MG/MONTH
     Dates: start: 2006
  2. OMALIZUMAB [Suspect]
     Dates: start: 2007
  3. FLUTICASONE [Suspect]
     Indication: ASTHMA
     Dosage: 2000 MG, PER DAY
  4. FLUTICASONE [Suspect]
     Dosage: 500 UG/D
  5. FORMOTEROL [Suspect]
     Indication: ASTHMA
     Dosage: 48 UG/D
  6. FORMOTEROL [Suspect]
     Dosage: 24 UG/D
  7. SALBUTAMOL [Suspect]
     Indication: ASTHMA
  8. METHYLPREDNISOLONE [Concomitant]
     Indication: ASTHMA
     Dosage: 16 MG/DAY
  9. BUDESONIDE [Concomitant]

REACTIONS (4)
  - Lower respiratory tract infection [Unknown]
  - Asthma [Unknown]
  - Maternal exposure during pregnancy [Unknown]
  - Normal newborn [Unknown]
